FAERS Safety Report 18577261 (Version 2)
Quarter: 2020Q4

REPORT INFORMATION
  Report Type: Spontaneous
  Country: FR (occurrence: FR)
  Receive Date: 20201203
  Receipt Date: 20201210
  Transmission Date: 20210114
  Serious: Yes (Other)
  Sender: FDA-Public Use
  Company Number: FR-UCBSA-2020048649

PATIENT
  Age: 21 Year
  Sex: Male
  Weight: 165 kg

DRUGS (3)
  1. KEPPRA [Suspect]
     Active Substance: LEVETIRACETAM
     Indication: EPILEPSY
     Dosage: UNK
  2. MIDAZOLAM [MIDAZOLAM HYDROCHLORIDE] [Concomitant]
     Active Substance: MIDAZOLAM HYDROCHLORIDE
     Indication: PRODUCT USED FOR UNKNOWN INDICATION
  3. FORLAX [Interacting]
     Active Substance: POLYETHYLENE GLYCOL 4000
     Indication: CONSTIPATION
     Dosage: UNK
     Route: 048
     Dates: start: 2015

REACTIONS (2)
  - Labelled drug-drug interaction medication error [Unknown]
  - Epilepsy [Unknown]
